FAERS Safety Report 24590118 (Version 5)
Quarter: 2025Q1

REPORT INFORMATION
  Report Type: Report from Study
  Country: US (occurrence: US)
  Receive Date: 20241107
  Receipt Date: 20250109
  Transmission Date: 20250408
  Serious: Yes (Other)
  Sender: ABBVIE
  Company Number: US-ABBVIE-5990563

PATIENT
  Sex: Female

DRUGS (4)
  1. VENCLEXTA [Suspect]
     Active Substance: VENETOCLAX
     Indication: Waldenstrom^s macroglobulinaemia
     Dosage: FORM STRENGTH: 100 MILLIGRAM
     Route: 048
  2. VENCLEXTA [Suspect]
     Active Substance: VENETOCLAX
     Indication: Waldenstrom^s macroglobulinaemia
     Dosage: FORM STRENGTH: 100 MILLIGRAM, TAKE 4 TABLET(S) BY MOUTH EVERY DAY
     Route: 048
     Dates: start: 2018
  3. PIRTOBRUTINIB [Suspect]
     Active Substance: PIRTOBRUTINIB
     Indication: Product used for unknown indication
     Route: 065
  4. ZANUBRUTINIB [Suspect]
     Active Substance: ZANUBRUTINIB
     Indication: Product used for unknown indication
     Route: 065

REACTIONS (12)
  - Malignant neoplasm progression [Recovering/Resolving]
  - COVID-19 [Unknown]
  - Adverse drug reaction [Unknown]
  - Blood immunoglobulin M increased [Unknown]
  - Pneumonia [Unknown]
  - Off label use [Unknown]
  - Sepsis [Unknown]
  - Hypoacusis [Not Recovered/Not Resolved]
  - Waldenstrom^s macroglobulinaemia [Unknown]
  - Stress [Not Recovered/Not Resolved]
  - Gastrointestinal disorder [Unknown]
  - Unevaluable event [Unknown]
